FAERS Safety Report 8486407-4 (Version None)
Quarter: 2012Q3

REPORT INFORMATION
  Report Type: 
  Country: None (occurrence: None)
  Receive Date: 20120703
  Receipt Date: 20120627
  Transmission Date: 20120928
  Serious: Yes (Other)
  Sender: FDA-Public Use
  Company Number: US-PFIZER INC-2012155209

PATIENT
  Sex: Female

DRUGS (2)
  1. REVATIO [Suspect]
     Dosage: UNK
  2. REVATIO [Suspect]
     Dosage: 20 MG, 2X/DAY (BID)
     Route: 048

REACTIONS (1)
  - PALPITATIONS [None]
